FAERS Safety Report 8303309-4 (Version None)
Quarter: 2012Q2

REPORT INFORMATION
  Report Type: 
  Country: None (occurrence: None)
  Receive Date: 20120423
  Receipt Date: 20120416
  Transmission Date: 20120825
  Serious: No
  Sender: FDA-Public Use
  Company Number: US-BIOGENIDEC-2012BI013346

PATIENT
  Age: 46 Year
  Sex: Female

DRUGS (2)
  1. PROVIGIL [Concomitant]
     Indication: FATIGUE
  2. TYSABRI [Suspect]
     Indication: MULTIPLE SCLEROSIS
     Route: 042
     Dates: start: 20120305

REACTIONS (1)
  - FATIGUE [None]
